FAERS Safety Report 9865268 (Version 1)
Quarter: 2014Q1

REPORT INFORMATION
  Report Type: Spontaneous
  Country: US (occurrence: US)
  Receive Date: 20140203
  Receipt Date: 20140203
  Transmission Date: 20141002
  Serious: No
  Sender: FDA-Public Use
  Company Number: US-ALLERGAN-1300459US

PATIENT
  Age: 63 Year
  Sex: Female

DRUGS (5)
  1. RESTASIS [Suspect]
     Indication: DRY EYE
     Dosage: 2 GTT, BID
     Route: 047
     Dates: start: 20121223, end: 20130108
  2. SYNTHROID [Concomitant]
     Indication: HYPOTHYROIDISM
     Dosage: UNK
  3. WATER PILL NOS [Concomitant]
     Indication: SWELLING
     Dosage: UNK
  4. K-DUR [Concomitant]
     Indication: SUPPLEMENTATION THERAPY
     Dosage: UNK
  5. LETROZOLE [Concomitant]
     Indication: BREAST CANCER
     Dosage: UNK
     Dates: start: 2012

REACTIONS (2)
  - Expired drug administered [Unknown]
  - Eye irritation [Recovered/Resolved]
